FAERS Safety Report 6141903 (Version 6)
Quarter: 2017Q3

REPORT INFORMATION
  Report Type: Spontaneous
  Country: US (occurrence: US)
  Receive Date: 20061005
  Receipt Date: 20170831
  Transmission Date: 20171128
  Serious: Yes (Hospitalization)
  Sender: FDA-Public Use
  Company Number: US-JNJFOC-20060906578

PATIENT
  Age: 46 Year
  Sex: Male
  Weight: 63.96 kg

DRUGS (19)
  1. FENTANYL TRANSDERMAL SYSTEM [Suspect]
     Active Substance: FENTANYL
     Indication: PAIN
     Route: 062
     Dates: start: 20050613, end: 200604
  2. OXYCODONE [Concomitant]
     Active Substance: OXYCODONE
     Indication: PAIN
     Route: 048
     Dates: start: 20050510
  3. OMEPRAZOLE. [Concomitant]
     Active Substance: OMEPRAZOLE
     Indication: GASTROOESOPHAGEAL REFLUX DISEASE
     Route: 048
     Dates: start: 20031229
  4. FOLIC ACID. [Concomitant]
     Active Substance: FOLIC ACID
     Route: 048
     Dates: start: 20031229
  5. ALPHAGAN P [Concomitant]
     Active Substance: BRIMONIDINE TARTRATE
     Route: 031
  6. GLYBURIDE. [Concomitant]
     Active Substance: GLYBURIDE
     Indication: DIABETES MELLITUS
     Route: 048
     Dates: start: 20030519
  7. FENTANYL TRANSDERMAL SYSTEM [Suspect]
     Active Substance: FENTANYL
     Indication: PAIN
     Route: 062
     Dates: start: 20050401, end: 20050613
  8. NPH INSULIN [Concomitant]
     Active Substance: INSULIN BEEF
     Indication: DIABETES MELLITUS
     Dosage: 26U AM AND 24U PM
     Route: 058
     Dates: start: 20040614
  9. FENTANYL TRANSDERMAL SYSTEM [Suspect]
     Active Substance: FENTANYL
     Indication: PAIN
     Route: 062
     Dates: start: 200604
  10. ASPIRIN. [Concomitant]
     Active Substance: ASPIRIN
     Route: 048
  11. GEMFIBROZIL. [Concomitant]
     Active Substance: GEMFIBROZIL
     Indication: HYPERLIPIDAEMIA
     Route: 048
     Dates: start: 20031229
  12. LIPITOR [Concomitant]
     Active Substance: ATORVASTATIN CALCIUM
     Indication: HYPERLIPIDAEMIA
     Route: 048
     Dates: start: 20050808
  13. LISINOPRIL. [Concomitant]
     Active Substance: LISINOPRIL
     Route: 048
  14. ZOLOFT [Concomitant]
     Active Substance: SERTRALINE HYDROCHLORIDE
     Indication: DEPRESSION
     Route: 048
     Dates: start: 20050201
  15. CAPSAICIN. [Concomitant]
     Active Substance: CAPSAICIN
     Route: 061
  16. ISOSORBIDE. [Concomitant]
     Active Substance: ISOSORBIDE
     Indication: CORONARY ARTERY DISEASE
     Route: 048
     Dates: start: 20040616
  17. DILTIAZEM. [Concomitant]
     Active Substance: DILTIAZEM
     Indication: CORONARY ARTERY DISEASE
     Route: 048
     Dates: start: 20060126
  18. DILTIAZEM. [Concomitant]
     Active Substance: DILTIAZEM
     Indication: HYPERTENSION
     Route: 048
     Dates: start: 20060126
  19. LAMISIL [Concomitant]
     Active Substance: TERBINAFINE HYDROCHLORIDE
     Indication: ONYCHOMYCOSIS
     Route: 048
     Dates: start: 20060502

REACTIONS (6)
  - Incorrect drug administration duration [Unknown]
  - Overdose [Unknown]
  - Device malfunction [Unknown]
  - Respiratory arrest [Recovered/Resolved]
  - Kidney infection [Not Recovered/Not Resolved]
  - Unresponsive to stimuli [Recovered/Resolved]

NARRATIVE: CASE EVENT DATE: 20060926
